FAERS Safety Report 12190700 (Version 1)
Quarter: 2016Q1

REPORT INFORMATION
  Report Type: Spontaneous
  Country: US (occurrence: US)
  Receive Date: 20160318
  Receipt Date: 20160318
  Transmission Date: 20160526
  Serious: Yes (Hospitalization)
  Sender: FDA-Public Use
  Company Number: US-NOVOPROD-483963

PATIENT
  Age: 58 Year
  Sex: Male
  Weight: 99.77 kg

DRUGS (2)
  1. LEVEMIR [Suspect]
     Active Substance: INSULIN DETEMIR
     Indication: TYPE 2 DIABETES MELLITUS
     Dosage: 65 U, QD
     Route: 058
     Dates: end: 201601
  2. NOVOLOG [Suspect]
     Active Substance: INSULIN ASPART
     Indication: TYPE 2 DIABETES MELLITUS
     Dosage: 23 U, QD (5 UNITS IN THE AM, 8 UNITS AT LUNCH, AND 10 UNITS IN THE PM)
     Route: 058
     Dates: end: 201601

REACTIONS (2)
  - Seizure [Recovered/Resolved]
  - Presbyopia [Not Recovered/Not Resolved]

NARRATIVE: CASE EVENT DATE: 20160101
